FAERS Safety Report 8431740-5 (Version None)
Quarter: 2012Q2

REPORT INFORMATION
  Report Type: 
  Country: None (occurrence: None)
  Receive Date: 20120323
  Receipt Date: 20110627
  Transmission Date: 20120825
  Serious: Yes (Hospitalization, Other)
  Sender: FDA-Public Use
  Company Number: 163-21880-11063648

PATIENT
  Age: 71 Year
  Sex: Male
  Weight: 70.3075 kg

DRUGS (4)
  1. ASPIRIN [Concomitant]
  2. REVLIMID [Suspect]
     Indication: MYELODYSPLASTIC SYNDROME
     Dosage: 15 MG, DAILY FOR 21/28 DAYS, PO, 15 MG, DAILY FOR 21/28 DAYS, PO
     Route: 048
     Dates: start: 20080610, end: 20110623
  3. REVLIMID [Suspect]
     Indication: MYELODYSPLASTIC SYNDROME
     Dosage: 15 MG, DAILY FOR 21/28 DAYS, PO, 15 MG, DAILY FOR 21/28 DAYS, PO
     Route: 048
     Dates: start: 20110628
  4. ACETAMINOPHEN [Concomitant]

REACTIONS (2)
  - LOBAR PNEUMONIA [None]
  - FULL BLOOD COUNT DECREASED [None]
